FAERS Safety Report 9520076 (Version 2)
Quarter: 2014Q1

REPORT INFORMATION
  Report Type: Spontaneous
  Country: SA (occurrence: SA)
  Receive Date: 20130912
  Receipt Date: 20140130
  Transmission Date: 20141002
  Serious: Yes (Other)
  Sender: FDA-Public Use
  Company Number: PHHY2013SA099246

PATIENT
  Age: 51 Year
  Sex: Female
  Weight: 75 kg

DRUGS (4)
  1. GILENYA [Suspect]
     Indication: MULTIPLE SCLEROSIS
     Dosage: 0.5 MG, QD
     Route: 048
     Dates: start: 20130827
  2. PROZAC [Concomitant]
     Dosage: 40 MG,
     Route: 048
     Dates: start: 20120408
  3. VALPROIC ACID [Concomitant]
     Dosage: 200 MG, BID
     Route: 048
     Dates: start: 20120408
  4. GABAPENTIN [Concomitant]
     Dosage: 400 MG, TID
     Route: 048
     Dates: start: 20120925

REACTIONS (2)
  - ECG signs of myocardial ischaemia [Unknown]
  - Bradycardia [Recovered/Resolved]
